FAERS Safety Report 7772738-X (Version None)
Quarter: 2011Q3

REPORT INFORMATION
  Report Type: 
  Country: None (occurrence: None)
  Receive Date: 20110922
  Receipt Date: 20110627
  Transmission Date: 20111222
  Serious: No
  Sender: FDA-Public Use
  Company Number: US-ASTRAZENECA-2011SE38858

PATIENT
  Age: 32 Year
  Sex: Male

DRUGS (1)
  1. SEROQUEL XR [Suspect]
     Indication: SCHIZOPHRENIA
     Dosage: DOSE FREQUENCY- 2 AT NIGHT, TOTAL DAILY DOSE- 400 MG
     Route: 048

REACTIONS (5)
  - HALLUCINATION, AUDITORY [None]
  - INSOMNIA [None]
  - DRUG DOSE OMISSION [None]
  - AGITATION [None]
  - PARANOIA [None]
